FAERS Safety Report 8854207 (Version 2)
Quarter: 2012Q4

REPORT INFORMATION
  Report Type: 
  Country: BR (occurrence: BR)
  Receive Date: 20121022
  Receipt Date: 20121121
  Transmission Date: 20130627
  Serious: Yes (Other)
  Sender: FDA-Public Use
  Company Number: BR-RANBAXY-2012R5-61055

PATIENT
  Age: 0 Year
  Sex: Male
  Weight: 4.5 kg

DRUGS (2)
  1. CEFUROXIME AXETIL [Suspect]
     Dosage: UNK
     Route: 063
     Dates: start: 20121006, end: 20121007
  2. REDOXON INFANT [Concomitant]
     Indication: VITAMIN SUPPLEMENTATION
     Dosage: 3 drops QD
     Route: 065

REACTIONS (10)
  - Exposure during breast feeding [Recovered/Resolved]
  - Somnolence [Recovered/Resolved]
  - Apathy [Recovered/Resolved]
  - Pallor [Recovered/Resolved]
  - Eye movement disorder [Recovered/Resolved]
  - Constipation [Recovered/Resolved]
  - Abdominal pain [Recovered/Resolved]
  - Agitation [Recovered/Resolved]
  - Weight decreased [Recovered/Resolved]
  - Flatulence [Recovered/Resolved]
